FAERS Safety Report 17164176 (Version 8)
Quarter: 2021Q1

REPORT INFORMATION
  Report Type: Spontaneous
  Country: JP (occurrence: JP)
  Receive Date: 20191217
  Receipt Date: 20210316
  Transmission Date: 20210419
  Serious: Yes (Death, Hospitalization, Disabling, Other)
  Sender: FDA-Public Use
  Company Number: JP-ASTRAZENECA-2019SF81778

PATIENT
  Age: 74 Year
  Sex: Male
  Weight: 54 kg

DRUGS (19)
  1. IMFINZI [Suspect]
     Active Substance: DURVALUMAB
     Indication: NON-SMALL CELL LUNG CANCER
     Route: 041
     Dates: start: 20190920, end: 20191101
  2. PREDONINE [Suspect]
     Active Substance: PREDNISOLONE
     Indication: C-REACTIVE PROTEIN INCREASED
     Dosage: 25 MG/DAY (MORNING: 15 MG, EVENING: 10 MG)
     Route: 048
     Dates: start: 20200123
  3. MIGLITOL. [Concomitant]
     Active Substance: MIGLITOL
     Indication: DIABETES MELLITUS
     Route: 048
  4. TAZIN [Concomitant]
     Active Substance: CARBAZOCHROME SODIUM SULFONATE
     Indication: VITREOUS HAEMORRHAGE
     Route: 048
  5. CILNIDIPINE [Concomitant]
     Active Substance: CILNIDIPINE
     Indication: RHINITIS ALLERGIC
     Route: 048
  6. PREDONINE [Suspect]
     Active Substance: PREDNISOLONE
     Indication: HEPATIC FUNCTION ABNORMAL
     Dosage: 30 MG/DAY (MORNING: 20 MG, EVENING: 10 MG)
     Route: 048
     Dates: start: 20191205, end: 20200122
  7. PREDONINE [Suspect]
     Active Substance: PREDNISOLONE
     Indication: HEPATIC FUNCTION ABNORMAL
     Dosage: 25 MG/DAY (MORNING: 15 MG, EVENING: 10 MG)
     Route: 048
     Dates: start: 20200123
  8. ODYNE [Concomitant]
     Active Substance: FLUTAMIDE
     Indication: PROSTATE CANCER
     Route: 048
     Dates: end: 20191227
  9. REBAMIPIDE [Concomitant]
     Active Substance: REBAMIPIDE
     Indication: CHRONIC GASTRITIS
     Route: 048
  10. OLMESARTAN [Concomitant]
     Active Substance: OLMESARTAN
     Indication: HYPERTENSION
     Route: 048
  11. METFORMIN HYDROCHLORIDE. [Concomitant]
     Active Substance: METFORMIN HYDROCHLORIDE
     Indication: DIABETES MELLITUS
     Route: 048
  12. D?CHLORPHENIRAMINE MALEATE [Concomitant]
     Active Substance: DEXCHLORPHENIRAMINE MALEATE
     Indication: RHINITIS ALLERGIC
     Route: 048
  13. MAGMITT [Concomitant]
     Active Substance: MAGNESIUM OXIDE
     Indication: CONSTIPATION
     Route: 048
  14. PREDONINE [Suspect]
     Active Substance: PREDNISOLONE
     Indication: C-REACTIVE PROTEIN INCREASED
     Dosage: 30 MG/DAY (MORNING: 20 MG, EVENING: 10 MG)
     Route: 048
     Dates: start: 20191205, end: 20200122
  15. TAKECAB [Concomitant]
     Active Substance: VONOPRAZAN FUMARATE
     Indication: CHRONIC GASTRITIS
     Route: 048
  16. IMFINZI [Suspect]
     Active Substance: DURVALUMAB
     Indication: NON-SMALL CELL LUNG CANCER
     Route: 041
     Dates: start: 20190801, end: 20190830
  17. MEQUITAZINE [Concomitant]
     Active Substance: MEQUITAZINE
     Indication: RHINITIS ALLERGIC
     Route: 048
  18. ROSUVASTATIN OD [Concomitant]
     Indication: DYSLIPIDAEMIA
     Route: 048
  19. LANTUS XR [Concomitant]
     Active Substance: INSULIN GLARGINE
     Indication: DIABETES MELLITUS
     Route: 058

REACTIONS (10)
  - C-reactive protein increased [Not Recovered/Not Resolved]
  - Metastases to liver [Fatal]
  - Lung neoplasm malignant [Fatal]
  - Oral candidiasis [Recovering/Resolving]
  - Oedema peripheral [Not Recovered/Not Resolved]
  - Hepatic function abnormal [Recovering/Resolving]
  - Cholangitis [Unknown]
  - Pruritus [Recovered/Resolved]
  - Hypoalbuminaemia [Not Recovered/Not Resolved]
  - Radiation pneumonitis [Recovering/Resolving]

NARRATIVE: CASE EVENT DATE: 20190816
